FAERS Safety Report 8733978 (Version 3)
Quarter: 2012Q4

REPORT INFORMATION
  Report Type: 
  Country: JP (occurrence: JP)
  Receive Date: 20120821
  Receipt Date: 20121220
  Transmission Date: 20130627
  Serious: Yes (Hospitalization, Other)
  Sender: FDA-Public Use
  Company Number: JP-JNJFOC-20120806238

PATIENT
  Age: 63 Year
  Sex: Female

DRUGS (15)
  1. REMICADE [Suspect]
     Indication: BEHCET^S SYNDROME
     Route: 042
     Dates: start: 201003
  2. REMICADE [Suspect]
     Indication: BEHCET^S SYNDROME
     Route: 042
     Dates: start: 20120516
  3. REMICADE [Suspect]
     Indication: BEHCET^S SYNDROME
     Route: 042
     Dates: start: 20121031
  4. REMICADE [Suspect]
     Indication: BEHCET^S SYNDROME
     Dosage: 16th dose
     Route: 042
     Dates: start: 20120808
  5. REMICADE [Suspect]
     Indication: BEHCET^S SYNDROME
     Route: 042
     Dates: start: 20080331
  6. METHOTREXATE [Suspect]
     Indication: PRODUCT USED FOR UNKNOWN INDICATION
     Route: 048
  7. STEROIDS NOS [Concomitant]
     Route: 065
     Dates: start: 2009
  8. COLCHICINE [Concomitant]
     Route: 048
     Dates: start: 2009
  9. COLCHICINE [Concomitant]
     Route: 048
  10. PREDONINE [Concomitant]
     Route: 048
  11. PREDONINE [Concomitant]
     Dosage: 2.5DF once daily
     Route: 048
  12. PREDONINE [Concomitant]
     Dosage: 5DF once daily (2.5 DF for one treatment)
     Route: 048
  13. ALL OTHER THERAPEUTIC PRODUCTS [Concomitant]
     Dosage: 1 pack per day after breakfast
     Route: 048
  14. REBAMIPIDE [Concomitant]
     Route: 048
  15. BENET [Concomitant]
     Route: 048

REACTIONS (2)
  - Eyelid oedema [Recovering/Resolving]
  - Infusion related reaction [Recovering/Resolving]
